FAERS Safety Report 8273637-X (Version None)
Quarter: 2012Q2

REPORT INFORMATION
  Report Type: 
  Country: None (occurrence: None)
  Receive Date: 20120411
  Receipt Date: 20120213
  Transmission Date: 20120825
  Serious: No
  Sender: FDA-Public Use
  Company Number: US-TEVA-322504USA

PATIENT
  Sex: Female
  Weight: 106.24 kg

DRUGS (11)
  1. MESTINON TIMESTAN [Concomitant]
     Dosage: QHS
     Route: 048
     Dates: start: 20020101
  2. AMLODIPINE [Concomitant]
     Indication: BLOOD PRESSURE
     Dosage: QHS
     Route: 048
     Dates: start: 20090101
  3. CYCLOSPORINE [Concomitant]
     Indication: MYASTHENIA GRAVIS
     Dosage: QHS
     Route: 048
     Dates: start: 19920101
  4. LEVOTHYROXINE SODIUM [Concomitant]
     Indication: BASEDOW'S DISEASE
     Dosage: QD
     Route: 048
     Dates: start: 19820101
  5. METHYLPREDNISOLONE SODIUM SUCCINATE [Suspect]
     Indication: MYASTHENIA GRAVIS
     Route: 042
     Dates: start: 20120124
  6. ANASTROZOLE [Concomitant]
     Indication: BREAST CANCER
     Dosage: QHS
     Route: 048
     Dates: start: 20080101
  7. MESTINON TIMESTAN [Concomitant]
     Indication: MYASTHENIA GRAVIS
     Dosage: QAM
     Route: 048
     Dates: start: 20020101
  8. PROMETHAZINE [Concomitant]
     Indication: NAUSEA
     Dosage: TID/PRN
     Route: 048
     Dates: start: 20080101
  9. PYRIDOSTIGMINE BROMIDE [Concomitant]
     Indication: MYASTHENIA GRAVIS
     Dosage: 120 QAM, 120 Q3HR
     Route: 048
     Dates: start: 19820101
  10. NUVIGIL [Suspect]
     Indication: DISTURBANCE IN ATTENTION
     Dosage: QAM
     Route: 048
     Dates: start: 20120124
  11. VICODIN [Concomitant]
     Indication: FIBROMYALGIA
     Dosage: 750/325 TID/PRN
     Route: 048
     Dates: start: 20080101

REACTIONS (4)
  - NAUSEA [None]
  - OFF LABEL USE [None]
  - EMOTIONAL DISTRESS [None]
  - INSOMNIA [None]
